FAERS Safety Report 5907587-8 (Version None)
Quarter: 2008Q4

REPORT INFORMATION
  Report Type: 
  Country: None (occurrence: None)
  Receive Date: 20081003
  Receipt Date: 20080926
  Transmission Date: 20090506
  Serious: Yes (Other)
  Sender: FDA-Public Use
  Company Number: CA-MERCK-0809CAN00150

PATIENT
  Sex: Female

DRUGS (2)
  1. FOSAMAX [Suspect]
     Route: 048
  2. [THERAPY UNSPECIFIED] [Concomitant]
     Indication: EPILEPSY
     Route: 065

REACTIONS (1)
  - EPILEPSY [None]
